FAERS Safety Report 18777535 (Version 1)
Quarter: 2021Q1

REPORT INFORMATION
  Report Type: Other
  Country: US (occurrence: US)
  Receive Date: 20210122
  Receipt Date: 20210122
  Transmission Date: 20210419
  Serious: Yes (Other)
  Sender: FDA-Public Use
  Company Number: US-ROCHE-2578307

PATIENT
  Age: 48 Year
  Sex: Male

DRUGS (2)
  1. RITUXIMAB. [Suspect]
     Active Substance: RITUXIMAB
     Indication: HAIRY CELL LEUKAEMIA
     Route: 042
  2. VEMURAFENIB. [Concomitant]
     Active Substance: VEMURAFENIB

REACTIONS (2)
  - Mycobacterial infection [Unknown]
  - Coccidioidomycosis [Unknown]
